FAERS Safety Report 8613768 (Version 4)
Quarter: 2014Q1

REPORT INFORMATION
  Report Type: Spontaneous
  Country: US (occurrence: US)
  Receive Date: 20120614
  Receipt Date: 20140108
  Transmission Date: 20141002
  Serious: Yes (Hospitalization, Disabling)
  Sender: FDA-Public Use
  Company Number: US-ASTRAZENECA-2012SE36375

PATIENT
  Age: 43 Year
  Sex: Female

DRUGS (4)
  1. NEXIUM [Suspect]
     Indication: GASTROOESOPHAGEAL REFLUX DISEASE
     Route: 048
  2. NEXIUM [Suspect]
     Indication: GASTROOESOPHAGEAL REFLUX DISEASE
     Route: 048
     Dates: start: 20070809
  3. OMEPRAZOLE [Suspect]
     Route: 048
  4. CIPROFLOXACIN [Concomitant]

REACTIONS (8)
  - Neoplasm malignant [Unknown]
  - Multiple fractures [Unknown]
  - Hand fracture [Unknown]
  - Upper limb fracture [Unknown]
  - Foot fracture [Unknown]
  - Lower limb fracture [Unknown]
  - Osteoporosis [Unknown]
  - Bone pain [Unknown]
